FAERS Safety Report 7323609-4 (Version None)
Quarter: 2011Q1

REPORT INFORMATION
  Report Type: 
  Country: None (occurrence: None)
  Receive Date: 20110301
  Receipt Date: 20110217
  Transmission Date: 20110831
  Serious: Yes (Other)
  Sender: FDA-Public Use
  Company Number: JP-PFIZER INC-2011016035

PATIENT
  Age: 79 Year
  Sex: Female
  Weight: 57 kg

DRUGS (4)
  1. CODEINE [Suspect]
     Indication: PROCEDURAL PAIN
     Dosage: 50 MG, 2X/DAY
     Route: 048
     Dates: start: 20080410
  2. LYRICA [Suspect]
     Indication: NEURALGIA
     Dosage: 150 MG, 2X/DAY
     Route: 048
     Dates: start: 20101125
  3. MAGNESIUM OXIDE [Suspect]
     Indication: CONSTIPATION PROPHYLAXIS
     Dosage: 330 MG, 2X/DAY
     Route: 048
     Dates: start: 20080410
  4. LYRICA [Suspect]
     Dosage: 75 MG, 2X/DAY
     Route: 048
     Dates: start: 20101111, end: 20101124

REACTIONS (2)
  - LYMPHOEDEMA [None]
  - CELLULITIS [None]
